FAERS Safety Report 8200720-7 (Version None)
Quarter: 2012Q1

REPORT INFORMATION
  Report Type: 
  Country: None (occurrence: None)
  Receive Date: 20120312
  Receipt Date: 20120306
  Transmission Date: 20120608
  Serious: Yes (Death, Other)
  Sender: FDA-Public Use
  Company Number: KR-ASTELLAS-2012JP001918

PATIENT
  Age: 60 Year
  Sex: Male

DRUGS (3)
  1. MYCOPHENOLATE MOFETIL [Suspect]
     Indication: IMMUNOSUPPRESSANT DRUG THERAPY
     Route: 065
  2. TACROLIMUS [Suspect]
     Indication: IMMUNOSUPPRESSANT DRUG THERAPY
     Dosage: UNK
     Route: 065
  3. PREDNISOLONE [Suspect]
     Indication: IMMUNOSUPPRESSANT DRUG THERAPY
     Route: 065

REACTIONS (3)
  - METASTASES TO BONE MARROW [None]
  - METASTATIC RENAL CELL CARCINOMA [None]
  - METASTASES TO LIVER [None]
